FAERS Safety Report 6429777-0 (Version None)
Quarter: 2009Q4

REPORT INFORMATION
  Report Type: 
  Country: None (occurrence: None)
  Receive Date: 20091103
  Receipt Date: 20091021
  Transmission Date: 20100525
  Serious: Yes (Life-Threatening, Hospitalization)
  Sender: FDA-Public Use
  Company Number: 8053742

PATIENT
  Age: 7 Year
  Sex: Female
  Weight: 50 kg

DRUGS (3)
  1. KEPPRA [Suspect]
     Indication: EPILEPSY
     Dosage: 250 MG 3/D PO
     Route: 048
     Dates: start: 20090923, end: 20091002
  2. TEICOPLANIN [Suspect]
     Indication: INFECTION
     Dosage: 100 MG 2/D IV
     Route: 042
     Dates: start: 20090923, end: 20091002
  3. COMPOUND AMINO ACID [Suspect]
     Indication: NUTRITIONAL SUPPORT
     Dosage: 300 MG /D IV
     Route: 042
     Dates: start: 20090923, end: 20091002

REACTIONS (5)
  - DERMATITIS BULLOUS [None]
  - HYPERSENSITIVITY [None]
  - SKIN EROSION [None]
  - SKIN EXFOLIATION [None]
  - WHITE BLOOD CELL COUNT INCREASED [None]
